FAERS Safety Report 4787750-2 (Version None)
Quarter: 2005Q3

REPORT INFORMATION
  Report Type: 
  Country: None (occurrence: None)
  Receive Date: 20050926
  Receipt Date: 20050808
  Transmission Date: 20060218
  Serious: Yes (Hospitalization)
  Sender: FDA-Public Use
  Company Number: 216751

PATIENT
  Sex: Male

DRUGS (3)
  1. AVASTIN [Suspect]
     Indication: COLORECTAL CANCER
  2. OXALIPLATIN (OXALIPLATIN) [Concomitant]
  3. 5-FU (FLUOROCURACIL) [Concomitant]

REACTIONS (2)
  - FISTULA [None]
  - GASTROINTESTINAL HAEMORRHAGE [None]
